FAERS Safety Report 25668676 (Version 1)
Quarter: 2025Q3

REPORT INFORMATION
  Report Type: Spontaneous
  Country: CN (occurrence: CN)
  Receive Date: 20250812
  Receipt Date: 20250812
  Transmission Date: 20251020
  Serious: Yes (Hospitalization)
  Sender: GE HEALTHCARE
  Company Number: CN-GE HEALTHCARE-2025CSU010689

PATIENT
  Sex: Female

DRUGS (1)
  1. VISIPAQUE [Suspect]
     Active Substance: IODIXANOL
     Indication: Angiogram
     Route: 065
     Dates: start: 20250801, end: 20250801

REACTIONS (7)
  - Photopsia [Unknown]
  - Vertigo [Unknown]
  - Head discomfort [Unknown]
  - Contrast media allergy [Unknown]
  - Feeding disorder [Unknown]
  - Nausea [Unknown]
  - Fatigue [Unknown]

NARRATIVE: CASE EVENT DATE: 20250801
